FAERS Safety Report 16792904 (Version 1)
Quarter: 2019Q3

REPORT INFORMATION
  Report Type: Spontaneous
  Country: FR (occurrence: FR)
  Receive Date: 20190910
  Receipt Date: 20190910
  Transmission Date: 20191005
  Serious: Yes (Other)
  Sender: FDA-Public Use
  Company Number: FR-B.I. PHARMACEUTICALS,INC./RIDGEFIELD-2019-BI-100970

PATIENT
  Age: 24 Year
  Sex: Female

DRUGS (4)
  1. BENZYLPENICILLINE [Suspect]
     Active Substance: PENICILLIN G
     Indication: SUICIDAL IDEATION
     Route: 048
     Dates: start: 20190719, end: 20190719
  2. SELENIUM [Suspect]
     Active Substance: SELENIUM
     Indication: SUICIDAL IDEATION
     Route: 048
     Dates: start: 20190719, end: 20190719
  3. MOBIC [Suspect]
     Active Substance: MELOXICAM
     Indication: SUICIDAL IDEATION
     Dosage: 20MG/ML
     Route: 048
     Dates: start: 20190719, end: 20190719
  4. ALCOHOL. [Suspect]
     Active Substance: ALCOHOL
     Indication: SUICIDAL IDEATION
     Route: 048
     Dates: start: 20190719

REACTIONS (4)
  - Vomiting [Recovered/Resolved]
  - Off label use [Unknown]
  - Suicidal ideation [Recovered/Resolved]
  - Abdominal pain [Recovered/Resolved]

NARRATIVE: CASE EVENT DATE: 20190719
